FAERS Safety Report 7501626 (Version 5)
Quarter: 2014Q2

REPORT INFORMATION
  Report Type: Spontaneous
  Country: JP (occurrence: None)
  Receive Date: 20100709
  Receipt Date: 20140527
  Transmission Date: 20141212
  Serious: Yes (Death, Life-Threatening, Hospitalization, Other)
  Sender: FDA-Public Use
  Company Number: 2010JP003737

PATIENT
  Age: 34 Year
  Sex: Male
  Weight: 60 kg

DRUGS (23)
  1. PROGRAF [Suspect]
     Indication: PROPHYLAXIS AGAINST TRANSPLANT REJECTION
     Dosage: 1-4.5 MG DAILY, TWICE DAILY, ORAL
     Route: 048
     Dates: start: 20030722, end: 20091225
  2. FUNGUARD [Suspect]
     Indication: PROPHYLAXIS
     Dosage: 150 MG, ONCE DAILY IV DRIP?
     Route: 041
     Dates: start: 20090907, end: 20091015
  3. CELLCEPT [Suspect]
     Indication: PROPHYLAXIS AGAINST TRANSPLANT REJECTION
     Dosage: 0.5 G, TWICE DAILY, ORAL
     Route: 048
     Dates: start: 20030722, end: 20091222
  4. CELLCEPT [Suspect]
     Dosage: 0.5 G, TWICE DAILY, ORAL
     Route: 048
     Dates: start: 20030722, end: 20091222
  5. PREDONINE [Suspect]
     Indication: PROPHYLAXIS AGAINST TRANSPLANT REJECTION
     Dosage: 5 MG, TWICE DAILY, ORAL
     Route: 048
     Dates: start: 20030722, end: 20100102
  6. ADALAT CR (NIFEDIPINE) MODIFIED-RELEASE TABLET [Concomitant]
  7. MICARDIS (TELMISARTAN) TABLET [Concomitant]
  8. AMOBAN (ZOPICLONE) TABLET [Concomitant]
  9. ZANTAC (RANITIDINE HYDORCHLORIDE) TABLET [Concomitant]
  10. CALCIUM CARBONATE (CALCIUM CARBONATE) TABLET [Concomitant]
  11. ENTERONON R (BIFIDOBACTERIUM BIFIDUM, LACTOBACILLUS ACIDOPHLUS, LACTOBACILLUS LACTIS, STREPTOCOCCS FAECALIS, STREPTOCOCCUS LACTIS) POWDER (EXCEPT DUSTING POWDER) [Concomitant]
  12. ZYLORIC (ALLOPURINOL) TABLET [Concomitant]
  13. KALIMATE (CALCIUM POLYSTYRENE SULFONATE) POWDER (EXCEPT DUSTING POWDER) [Concomitant]
  14. ITRIZOLE (ITRACONAZOLE) CAPSULE [Concomitant]
  15. MINOMYCIN (MINOCYCLINE HYDROCHLORIDE) CAPSULE [Concomitant]
  16. NAUZELIN (DOMPERIDONE) TABLET [Concomitant]
  17. PURSENNID (SENNOSIDE A+B CALCIUM) TABLET [Concomitant]
  18. MUCODYNE (CARBOCISTEINE) TABLET [Concomitant]
  19. NOVORAPID (INSULIN ASPART) INJECTION [Concomitant]
  20. ALFAROL (ALFACALCIDOL) CAPSULE [Concomitant]
  21. BAKTAR (SULFAMETHOXAZOLE, TRIMETHOPIRM) TABLET? [Concomitant]
  22. FINIBAX (DORIPENEM) INJECTION [Concomitant]
  23. DENOSINE (GANCICLOVIR) INJECTION [Concomitant]

REACTIONS (24)
  - Activated partial thromboplastin time prolonged [None]
  - Catheter site haemorrhage [None]
  - Disseminated intravascular coagulation [None]
  - Pulmonary oedema [None]
  - Pneumocystis jirovecii pneumonia [None]
  - Cardiac failure acute [None]
  - Pulmonary alveolar haemorrhage [None]
  - Depressed level of consciousness [None]
  - General physical health deterioration [None]
  - Fungal sepsis [None]
  - Pulmonary mycosis [None]
  - Nocardiosis [None]
  - Fungal endocarditis [None]
  - Aspergillus infection [None]
  - Scedosporium infection [None]
  - Cytomegalovirus chorioretinitis [None]
  - Cardiac valve vegetation [None]
  - Pyrexia [None]
  - Headache [None]
  - Meningitis bacterial [None]
  - Meningitis listeria [None]
  - Platelet count decreased [None]
  - Fibrin degradation products increased [None]
  - Prothrombin time abnormal [None]
